FAERS Safety Report 5125233-0 (Version None)
Quarter: 2006Q4

REPORT INFORMATION
  Report Type: 
  Country: None (occurrence: None)
  Receive Date: 20061011
  Receipt Date: 20061005
  Transmission Date: 20070319
  Serious: Yes (Other)
  Sender: FDA-Public Use
  Company Number: US-ROXANE LABORATORIES, INC-2006-BP-11711RO

PATIENT
  Age: 38 Year
  Sex: Male

DRUGS (2)
  1. AZATHIOPRINE [Suspect]
     Indication: COLITIS ULCERATIVE
     Route: 048
  2. PREDNISONE TAB [Suspect]
     Indication: COLITIS ULCERATIVE

REACTIONS (9)
  - ARTHRALGIA [None]
  - DISEASE PROGRESSION [None]
  - DRUG HYPERSENSITIVITY [None]
  - DRUG INEFFECTIVE [None]
  - HYPERSENSITIVITY [None]
  - MUSCULAR WEAKNESS [None]
  - PLATELET COUNT INCREASED [None]
  - PYREXIA [None]
  - WHITE BLOOD CELL COUNT INCREASED [None]
